FAERS Safety Report 21944358 (Version 1)
Quarter: 2023Q1

REPORT INFORMATION
  Report Type: Spontaneous
  Country: US (occurrence: None)
  Receive Date: 20230201
  Receipt Date: 20230201
  Transmission Date: 20230418
  Serious: No
  Sender: FDA-Public Use
  Company Number: None

PATIENT
  Sex: Male
  Weight: 101.6 kg

DRUGS (1)
  1. CAPECITABINE [Suspect]
     Active Substance: CAPECITABINE
     Indication: Rectal cancer
     Dosage: OTHER QUANTITY : 2000MG-1500MG;?OTHER FREQUENCY : AM - PM ;?OTHER ROUTE : ORAL - 14 DAYS ON, 7 D OFF
     Route: 050

REACTIONS (2)
  - Malignant neoplasm progression [None]
  - Breast cancer female [None]
